FAERS Safety Report 18252428 (Version 1)
Quarter: 2020Q3

REPORT INFORMATION
  Report Type: Spontaneous
  Country: US (occurrence: US)
  Receive Date: 20200910
  Receipt Date: 20200910
  Transmission Date: 20201103
  Serious: No
  Sender: FDA-Public Use
  Company Number: US-BIODELIVERY SCIENCES INTERNATIONAL-2020BDSI0355

PATIENT
  Age: 63 Year
  Sex: Female
  Weight: 57.66 kg

DRUGS (1)
  1. BUPRENORPHINE. [Suspect]
     Active Substance: BUPRENORPHINE
     Indication: PAIN
     Route: 002
     Dates: start: 20200519

REACTIONS (21)
  - Abdominal pain upper [Not Recovered/Not Resolved]
  - Cold sweat [Not Recovered/Not Resolved]
  - Product use complaint [Unknown]
  - Feeling of body temperature change [Not Recovered/Not Resolved]
  - Chest discomfort [Not Recovered/Not Resolved]
  - Hyperhidrosis [Not Recovered/Not Resolved]
  - Nasal pruritus [Not Recovered/Not Resolved]
  - Product size issue [Unknown]
  - Product packaging difficult to open [Unknown]
  - Gastrointestinal pain [Not Recovered/Not Resolved]
  - Paraesthesia [Not Recovered/Not Resolved]
  - Sinus disorder [Not Recovered/Not Resolved]
  - Dry mouth [Not Recovered/Not Resolved]
  - Diarrhoea [Not Recovered/Not Resolved]
  - Feeling cold [Not Recovered/Not Resolved]
  - Back pain [Not Recovered/Not Resolved]
  - Feeling hot [Not Recovered/Not Resolved]
  - Eye pruritus [Not Recovered/Not Resolved]
  - Oral administration complication [Unknown]
  - Palpitations [Not Recovered/Not Resolved]
  - Product outer packaging issue [Unknown]

NARRATIVE: CASE EVENT DATE: 202005
